FAERS Safety Report 11688519 (Version 1)
Quarter: 2015Q4

REPORT INFORMATION
  Report Type: Spontaneous
  Country: FR (occurrence: FR)
  Receive Date: 20151101
  Receipt Date: 20151101
  Transmission Date: 20160304
  Serious: Yes (Death, Life-Threatening)
  Sender: FDA-Public Use
  Company Number: FR-HOSPIRA-3054429

PATIENT
  Age: 14 Year
  Sex: Male

DRUGS (13)
  1. VINCRISTINE SULFATE. [Suspect]
     Active Substance: VINCRISTINE SULFATE
     Indication: EWING^S SARCOMA
     Route: 042
     Dates: start: 20111215, end: 20120217
  2. DOXORUBICINE EBEWE [Suspect]
     Active Substance: DOXORUBICIN HYDROCHLORIDE
     Indication: EWING^S SARCOMA
     Route: 042
     Dates: start: 20110621, end: 201110
  3. COSMEGEN [Concomitant]
     Active Substance: DACTINOMYCIN
     Indication: EWING^S SARCOMA
     Route: 042
     Dates: start: 20120224
  4. HOLOXAN [Suspect]
     Active Substance: IFOSFAMIDE
     Indication: EWING^S SARCOMA
     Dosage: 102 G/M2
     Route: 042
     Dates: start: 20120224, end: 201208
  5. ETOPOSIDE TEVA [Suspect]
     Active Substance: ETOPOSIDE
     Indication: EWING^S SARCOMA
     Route: 042
     Dates: start: 20110621, end: 201110
  6. COSMEGEN [Concomitant]
     Active Substance: DACTINOMYCIN
     Indication: EWING^S SARCOMA
     Route: 042
     Dates: start: 20111215, end: 20120217
  7. HOLOXAN [Suspect]
     Active Substance: IFOSFAMIDE
     Indication: EWING^S SARCOMA
     Dosage: 18 G/M2
     Route: 042
     Dates: start: 20111215, end: 20120217
  8. ETOPOSIDE TEVA [Suspect]
     Active Substance: ETOPOSIDE
     Indication: EWING^S SARCOMA
     Route: 042
     Dates: start: 20120224
  9. VINCRISTINE SULFATE. [Suspect]
     Active Substance: VINCRISTINE SULFATE
     Indication: EWING^S SARCOMA
     Route: 042
     Dates: start: 20120224, end: 201208
  10. DOXORUBICINE EBEWE [Suspect]
     Active Substance: DOXORUBICIN HYDROCHLORIDE
     Indication: EWING^S SARCOMA
     Route: 042
     Dates: start: 20120224, end: 201208
  11. UROMITEXAN [Concomitant]
     Active Substance: MESNA
     Indication: PROPHYLAXIS
     Route: 042
     Dates: start: 20110621, end: 201208
  12. HOLOXAN [Suspect]
     Active Substance: IFOSFAMIDE
     Indication: EWING^S SARCOMA
     Dosage: 3 G/M2
     Route: 042
     Dates: start: 20110621, end: 201110
  13. VINCRISTINE SULFATE. [Suspect]
     Active Substance: VINCRISTINE SULFATE
     Indication: EWING^S SARCOMA
     Dosage: 1.5 G/M2
     Route: 042
     Dates: start: 20110621, end: 201110

REACTIONS (7)
  - Acute myeloid leukaemia [Fatal]
  - Aplasia [Not Recovered/Not Resolved]
  - Multi-organ failure [Fatal]
  - Cardiac failure [Not Recovered/Not Resolved]
  - Renal impairment [Not Recovered/Not Resolved]
  - Hepatic failure [Not Recovered/Not Resolved]
  - Pleural effusion [Not Recovered/Not Resolved]

NARRATIVE: CASE EVENT DATE: 2014
